FAERS Safety Report 8095648-X (Version None)
Quarter: 2012Q1

REPORT INFORMATION
  Report Type: 
  Country: None (occurrence: None)
  Receive Date: 20120129
  Receipt Date: 20111227
  Transmission Date: 20120608
  Serious: No
  Sender: FDA-Public Use
  Company Number: US-ABBOTT-11P-163-0887337-00

PATIENT
  Age: 25 Year
  Sex: Female

DRUGS (5)
  1. MOBIC [Concomitant]
     Indication: PAIN
  2. HUMIRA [Suspect]
     Indication: ANKYLOSING SPONDYLITIS
     Dates: start: 20111101
  3. FENTANYL [Concomitant]
     Indication: PAIN
  4. PERCOCET [Concomitant]
     Indication: PAIN
  5. NUVARING [Concomitant]
     Indication: PRODUCT USED FOR UNKNOWN INDICATION

REACTIONS (4)
  - AMENORRHOEA [None]
  - INCORRECT ROUTE OF DRUG ADMINISTRATION [None]
  - DIARRHOEA [None]
  - INJECTION SITE PAIN [None]
